FAERS Safety Report 13278521 (Version 1)
Quarter: 2017Q1

REPORT INFORMATION
  Report Type: Spontaneous
  Country: US (occurrence: US)
  Receive Date: 20170228
  Receipt Date: 20170228
  Transmission Date: 20170428
  Serious: Yes (Other)
  Sender: FDA-Public Use
  Company Number: US-MYLANLABS-2017M1011958

PATIENT

DRUGS (6)
  1. NEOSTIGMINE [Suspect]
     Active Substance: NEOSTIGMINE
     Dosage: 0.05 MG/KG
     Route: 064
  2. GLYCOPYRROLATE                     /00196201/ [Suspect]
     Active Substance: GLYCOPYRRONIUM
     Dosage: 0.005 MG/KG
     Route: 064
  3. VECURONIUM [Suspect]
     Active Substance: VECURONIUM BROMIDE
     Dosage: 0.1 MG/KG
     Route: 064
  4. ETOMIDATE. [Suspect]
     Active Substance: ETOMIDATE
     Dosage: 0.2 MG/KG
     Route: 064
  5. ISOFLURANE. [Suspect]
     Active Substance: ISOFLURANE
     Dosage: MAINTAINED ON 0.8 MINIMUM ALVEOLAR CONCENTRATION
     Route: 064
  6. FENTANYL. [Suspect]
     Active Substance: FENTANYL
     Dosage: 2 MICROG/KG
     Route: 064

REACTIONS (3)
  - Cardiac arrest [Recovered/Resolved]
  - Bradycardia foetal [Recovered/Resolved]
  - Foetal exposure during pregnancy [Recovered/Resolved]
